FAERS Safety Report 10388821 (Version 1)
Quarter: 2014Q1

REPORT INFORMATION
  Report Type: Spontaneous
  Country: US (occurrence: None)
  Receive Date: 20140306
  Receipt Date: 20140306
  Transmission Date: 20141002
  Serious: Yes (Hospitalization)
  Sender: FDA-Public Use
  Company Number: 163-21880-13104947

PATIENT
  Age: 60 Year
  Sex: Male

DRUGS (17)
  1. REVLIMID (LENALIDOMIDE) (25 MILLIGRAM, CAPSULES) [Suspect]
     Indication: PLASMA CELL MYELOMA
     Dosage: 25 MG, 14 IN 14 D, PO
     Route: 048
     Dates: start: 20130730, end: 20131022
  2. CALCIUM WITH VITAMIN D (CALCIUM WITH VITAMIN D) [Concomitant]
  3. POLYETHYLENE GLYCOL (MACROGOL) [Concomitant]
  4. BORTEZOMIB (BORTEZOMIB) [Concomitant]
  5. OXYCODONE ER (OXYCODONE HYDROCHLORIDE) [Concomitant]
  6. SIMETHICONE (DIMETICONE, ACTIVATED) [Concomitant]
  7. DOCUSATE (DOCUSATE) [Concomitant]
  8. AMOXICILLIN (AMOXICILLIN) [Concomitant]
  9. MULTIVITAMINS (MULTIVITAMINS) [Concomitant]
  10. CITALOPRAM (CITALOPRAM) [Concomitant]
  11. PANTOPRAZOLE (PANTOPRAZOLE) [Concomitant]
  12. ASA (ACETYLSALICYLIC ACID) [Concomitant]
  13. GABAPENTIN (GABAPENTIN) [Concomitant]
  14. OXYCODONE (OXYCODONE) [Concomitant]
  15. DEXAMETHASONE (DEXAMETHASONE) [Concomitant]
  16. ONDASETRON (ONDANSETRON) [Concomitant]
  17. ACYCLOVIR (ACICLOVIR) [Concomitant]

REACTIONS (1)
  - Pyrexia [None]
